FAERS Safety Report 13255637 (Version 1)
Quarter: 2017Q1

REPORT INFORMATION
  Report Type: Spontaneous
  Country: US (occurrence: US)
  Receive Date: 20170217
  Receipt Date: 20170217
  Transmission Date: 20170428
  Serious: No
  Sender: FDA-Public Use
  Company Number: None

PATIENT
  Age: 55 Year
  Sex: Male

DRUGS (1)
  1. CAPECITABINE 500MG ACCORD [Suspect]
     Active Substance: CAPECITABINE
     Dosage: 1000MG BID 7 DAYS ON 7 DAYS OFF PO
     Route: 048
     Dates: start: 20161109

REACTIONS (1)
  - Muscle spasms [None]

NARRATIVE: CASE EVENT DATE: 20170205
